FAERS Safety Report 10280607 (Version 2)
Quarter: 2014Q3

REPORT INFORMATION
  Report Type: Report from Study
  Country: HK (occurrence: HK)
  Receive Date: 20140707
  Receipt Date: 20140707
  Transmission Date: 20150326
  Serious: Yes (Hospitalization)
  Sender: FDA-Public Use
  Company Number: HK-SA-2013SA129473

PATIENT
  Age: 66 Year
  Sex: Female

DRUGS (14)
  1. CISPLATIN. [Suspect]
     Active Substance: CISPLATIN
     Indication: NASOPHARYNGEAL CANCER
     Route: 065
     Dates: end: 201311
  2. CETUXIMAB [Suspect]
     Active Substance: CETUXIMAB
     Indication: NASOPHARYNGEAL CANCER
     Route: 065
     Dates: start: 20131204
  3. FAMOTIDINE. [Concomitant]
     Active Substance: FAMOTIDINE
  4. DOCETAXEL [Suspect]
     Active Substance: DOCETAXEL
     Indication: NASOPHARYNGEAL CANCER
     Dosage: CONCURRENT TREATMENT
     Route: 065
     Dates: start: 20131204
  5. 5-FU [Suspect]
     Active Substance: FLUOROURACIL
     Indication: NASOPHARYNGEAL CANCER
     Route: 065
     Dates: end: 201311
  6. PHENSEDYL [Concomitant]
  7. RENITEC [Concomitant]
     Active Substance: ENALAPRIL MALEATE
  8. COLACE [Concomitant]
     Active Substance: DOCUSATE SODIUM
  9. PANADOL [Concomitant]
     Active Substance: ACETAMINOPHEN
  10. THYROXIN [Concomitant]
     Active Substance: LEVOTHYROXINE
  11. DOCETAXEL [Suspect]
     Active Substance: DOCETAXEL
     Indication: NASOPHARYNGEAL CANCER
     Dosage: INDUCTION CHEMOTHERAPY
     Route: 065
     Dates: end: 201311
  12. THERAPEUTIC RADIOPHARMACEUTICALS [Suspect]
     Active Substance: RADIATION THERAPY
     Indication: NASOPHARYNGEAL CANCER
     Route: 065
  13. NORVASC [Concomitant]
     Active Substance: AMLODIPINE BESYLATE
  14. MAGNESIUM TRISILICATE [Concomitant]
     Active Substance: MAGNESIUM TRISILICATE

REACTIONS (2)
  - Hyponatraemia [Unknown]
  - Chest pain [Recovered/Resolved]

NARRATIVE: CASE EVENT DATE: 20131208
